FAERS Safety Report 18388165 (Version 1)
Quarter: 2020Q4

REPORT INFORMATION
  Report Type: Spontaneous
  Country: US (occurrence: US)
  Receive Date: 20201015
  Receipt Date: 20201015
  Transmission Date: 20210114
  Serious: Yes (Hospitalization)
  Sender: FDA-Public Use
  Company Number: US-PFIZER INC-2020394074

PATIENT
  Age: 1 Year
  Sex: Female
  Weight: 7.71 kg

DRUGS (3)
  1. LEVOTHYROXINE. [Concomitant]
     Active Substance: LEVOTHYROXINE
     Indication: HYPOPITUITARISM
     Dosage: UNK, 1X/DAY (1/2 OF AN 88MCG TABLET CRUSHED UP AND PUT IN DRINK OR FOOD ONCE A DAY)
     Dates: start: 2019
  2. HYDROCORTISONE. [Suspect]
     Active Substance: HYDROCORTISONE
     Indication: HYPOPITUITARISM
     Dosage: UNK, 3X/DAY (1/4 OF A 5MG TABLET CRUSHED UP IN DRINK OR FOOD THREE TIMES A DAY)
  3. HYDROCORTISONE. [Suspect]
     Active Substance: HYDROCORTISONE
     Dosage: 5 MG, 3X/DAY

REACTIONS (4)
  - Off label use [Not Recovered/Not Resolved]
  - Product dose omission issue [Recovered/Resolved]
  - Hypoglycaemia [Recovered/Resolved]
  - Product use issue [Not Recovered/Not Resolved]

NARRATIVE: CASE EVENT DATE: 20200928
